FAERS Safety Report 5943511-X (Version None)
Quarter: 2008Q4

REPORT INFORMATION
  Report Type: 
  Country: None (occurrence: None)
  Receive Date: 20081106
  Receipt Date: 20081030
  Transmission Date: 20090506
  Serious: Yes (Death)
  Sender: FDA-Public Use
  Company Number: IE-SANOFI-SYNTHELABO-A01200806863

PATIENT
  Sex: Male

DRUGS (4)
  1. ELOXATIN [Suspect]
     Indication: COLON CANCER
     Dosage: 208 MG
     Route: 041
     Dates: start: 20071212, end: 20071212
  2. PAIN-KILLERS [Concomitant]
     Dosage: UNK
  3. INHALERS [Concomitant]
     Dosage: UNK
  4. CAPECITABINE [Suspect]
     Dosage: UNK

REACTIONS (4)
  - ANAPHYLACTIC REACTION [None]
  - CARDIAC ARREST [None]
  - DYSPNOEA [None]
  - FEELING COLD [None]
